FAERS Safety Report 10184048 (Version 2)
Quarter: 2014Q2

REPORT INFORMATION
  Report Type: Spontaneous
  Country: GB (occurrence: GB)
  Receive Date: 20140520
  Receipt Date: 20140609
  Transmission Date: 20141212
  Serious: Yes (Other)
  Sender: FDA-Public Use
  Company Number: GB-GLAXOSMITHKLINE-B0994877A

PATIENT
  Age: 42 Year
  Sex: Male

DRUGS (28)
  1. LAMICTAL [Suspect]
  2. LAMICTAL [Suspect]
     Indication: EPILEPSY
  3. LAMOTRIGINE [Suspect]
     Dosage: 300MG PER DAY
  4. LAMICTAL [Suspect]
  5. LAMICTAL [Suspect]
  6. LAMICTAL [Suspect]
     Dates: start: 200309
  7. TEGRETOL [Suspect]
  8. TEGRETOL [Suspect]
  9. TEGRETOL [Suspect]
  10. TEGRETOL [Suspect]
     Dates: start: 200309, end: 20120511
  11. TEGRETOL [Suspect]
     Dosage: 600MG PER DAY
     Dates: start: 20140206
  12. TEGRETOL [Suspect]
  13. TEGRETOL [Suspect]
  14. TEGRETOL [Suspect]
  15. TEGRETOL [Suspect]
     Indication: EPILEPSY
     Dosage: 600MG PER DAY
     Dates: start: 1989, end: 20140101
  16. VALPROIC ACID [Suspect]
  17. VALPROIC ACID [Suspect]
  18. TOPIRAMATE [Suspect]
  19. MIDAZOLAM [Suspect]
     Route: 002
  20. LAMICTAL [Suspect]
     Indication: EPILEPSY
  21. LAMOTRIGINE [Suspect]
  22. CARBAMAZEPINE [Suspect]
     Indication: CONVULSION
     Dosage: 400MG PER DAY
     Dates: start: 1988
  23. CARBAMAZEPINE [Suspect]
     Dosage: 400MG PER DAY
  24. CARBAMAZEPINE [Suspect]
     Dosage: 600MG PER DAY
  25. CARBAMAZEPINE [Suspect]
     Dosage: 200MG PER DAY
  26. CARBAMAZEPINE [Suspect]
     Dosage: 600MG PER DAY
  27. VITAMIN D [Concomitant]
     Indication: BONE DISORDER
  28. ADCAL D3 [Concomitant]

REACTIONS (43)
  - Hallucination [Unknown]
  - Dyskinesia [Not Recovered/Not Resolved]
  - Drug level increased [Unknown]
  - Catatonia [Unknown]
  - Insomnia [Unknown]
  - Euphoric mood [Unknown]
  - Epilepsy [Unknown]
  - Fear [Unknown]
  - Psychotic disorder [Unknown]
  - Tonic clonic movements [Not Recovered/Not Resolved]
  - Toxicity to various agents [Unknown]
  - Malaise [Unknown]
  - Stress [Unknown]
  - Ataxia [Not Recovered/Not Resolved]
  - Aggression [Unknown]
  - Agitation [Unknown]
  - Anxiety [Unknown]
  - Balance disorder [Unknown]
  - Musculoskeletal stiffness [Unknown]
  - Complex partial seizures [Unknown]
  - Diarrhoea [Unknown]
  - Distractibility [Unknown]
  - Emotional distress [Unknown]
  - Cerebral ventricle dilatation [Unknown]
  - Convulsion [Unknown]
  - Frustration [Unknown]
  - Gastrointestinal disorder [Unknown]
  - Gait disturbance [Unknown]
  - Petit mal epilepsy [Unknown]
  - Depressed level of consciousness [Unknown]
  - Bone density decreased [Unknown]
  - Microcephaly [Unknown]
  - Abnormal behaviour [Unknown]
  - Irritability [Unknown]
  - Decreased appetite [Unknown]
  - Depressed mood [Unknown]
  - Staring [Unknown]
  - Hyperexplexia [Unknown]
  - Suspiciousness [Unknown]
  - Fatigue [Unknown]
  - Generalised tonic-clonic seizure [Unknown]
  - Tremor [Unknown]
  - Upper respiratory tract infection [Unknown]
